FAERS Safety Report 9797757 (Version 1)
Quarter: 2014Q1

REPORT INFORMATION
  Report Type: Spontaneous
  Country: FR (occurrence: FR)
  Receive Date: 20140106
  Receipt Date: 20140106
  Transmission Date: 20141002
  Serious: Yes (Hospitalization)
  Sender: FDA-Public Use
  Company Number: FR-JNJFOC-20131216511

PATIENT
  Age: 85 Year
  Sex: Male

DRUGS (13)
  1. DUROGESIC [Suspect]
     Indication: SPINAL PAIN
     Route: 062
     Dates: start: 20130810, end: 20130812
  2. ATACAND [Suspect]
     Indication: HYPERTENSION
     Route: 048
     Dates: end: 20130812
  3. INSPRA [Suspect]
     Indication: HYPERTENSION
     Route: 048
  4. BI-PROFENID [Suspect]
     Indication: SPINAL PAIN
     Route: 048
     Dates: start: 20130810, end: 20130812
  5. ORAMORPH [Suspect]
     Indication: SPINAL PAIN
     Route: 048
     Dates: start: 20130810, end: 20130812
  6. LASIX RETARD [Concomitant]
     Route: 048
  7. ORMANDYL [Concomitant]
     Route: 048
  8. SINGULAIR [Concomitant]
     Route: 065
  9. SYMBICORT TURBUHALER [Concomitant]
     Route: 065
  10. JOSIR [Concomitant]
     Route: 048
  11. DISCOTRINE [Concomitant]
     Route: 065
  12. KARDEGIC [Concomitant]
     Route: 048
  13. CARDENSIEL [Concomitant]
     Route: 048

REACTIONS (1)
  - Renal failure acute [Recovered/Resolved]
